FAERS Safety Report 6783973-1 (Version None)
Quarter: 2010Q2

REPORT INFORMATION
  Report Type: 
  Country: None (occurrence: None)
  Receive Date: 20100622
  Receipt Date: 20091119
  Transmission Date: 20101027
  Serious: No
  Sender: FDA-Public Use
  Company Number: US-BRISTOL-MYERS SQUIBB COMPANY-14864789

PATIENT

DRUGS (2)
  1. SINEMET [Suspect]
  2. COMTAN [Suspect]

REACTIONS (2)
  - NAUSEA [None]
  - VOMITING [None]
